FAERS Safety Report 21655548 (Version 1)
Quarter: 2022Q4

REPORT INFORMATION
  Report Type: Report from Study
  Country: DE (occurrence: DE)
  Receive Date: 20221129
  Receipt Date: 20221129
  Transmission Date: 20230113
  Serious: Yes (Hospitalization)
  Sender: FDA-Public Use
  Company Number: DE-ABBVIE-4216174

PATIENT
  Age: 56 Year
  Sex: Female

DRUGS (2)
  1. RINVOQ [Suspect]
     Active Substance: UPADACITINIB
     Indication: Rheumatoid arthritis
     Route: 048
     Dates: start: 20220307
  2. CORTISONE [Concomitant]
     Active Substance: CORTISONE
     Indication: Product used for unknown indication
     Dosage: GLAUCOMA DROPS

REACTIONS (4)
  - Glaucoma [Recovered/Resolved]
  - Glaucoma [Recovered/Resolved]
  - Joint injection [Recovered/Resolved]
  - Bone marrow oedema [Recovered/Resolved]

NARRATIVE: CASE EVENT DATE: 20220701
